FAERS Safety Report 12884499 (Version 2)
Quarter: 2018Q2

REPORT INFORMATION
  Report Type: Other
  Country: US (occurrence: US)
  Receive Date: 20161026
  Receipt Date: 20180503
  Transmission Date: 20180711
  Serious: Yes (Hospitalization)
  Sender: FDA-Public Use
  Company Number: US-ACORDA-ACO_129384_2016

PATIENT
  Age: 39 Year
  Sex: Male

DRUGS (1)
  1. AMPYRA [Suspect]
     Active Substance: DALFAMPRIDINE
     Indication: MULTIPLE SCLEROSIS
     Dosage: 10 MG, UNK

REACTIONS (5)
  - Bladder catheterisation [Unknown]
  - Urinary tract infection [Unknown]
  - Gait disturbance [Unknown]
  - Localised infection [Unknown]
  - Urosepsis [Unknown]

NARRATIVE: CASE EVENT DATE: 201609
